FAERS Safety Report 9626173 (Version 1)
Quarter: 2013Q4

REPORT INFORMATION
  Report Type: Spontaneous
  Country: US (occurrence: None)
  Receive Date: 20131015
  Receipt Date: 20131015
  Transmission Date: 20140711
  Serious: No
  Sender: FDA-Public Use
  Company Number: None

PATIENT
  Age: 26 Year
  Sex: Male
  Weight: 73.48 kg

DRUGS (1)
  1. CONCERTA [Suspect]
     Indication: ATTENTION DEFICIT/HYPERACTIVITY DISORDER
     Dosage: 1  ONCE DAILY  TAKEN BY MOUTH
     Route: 048
     Dates: start: 20130601, end: 20131014

REACTIONS (3)
  - Therapeutic response unexpected with drug substitution [None]
  - Product substitution issue [None]
  - Drug effect decreased [None]
